FAERS Safety Report 8124223 (Version 9)
Quarter: 2013Q1

REPORT INFORMATION
  Report Type: Spontaneous
  Country: JP (occurrence: JP)
  Receive Date: 20110907
  Receipt Date: 20130225
  Transmission Date: 20140127
  Serious: Yes (Life-Threatening, Hospitalization, Other)
  Sender: FDA-Public Use
  Company Number: JP-ABBOTT-11P-087-0850911-00

PATIENT
  Age: 69 None
  Sex: Female
  Weight: 50.6 kg

DRUGS (11)
  1. ADALIMUMAB [Suspect]
     Indication: RHEUMATOID ARTHRITIS
     Route: 058
     Dates: start: 20101105, end: 20101216
  2. ADALIMUMAB [Suspect]
     Dates: start: 20101217, end: 20101217
  3. ADALIMUMAB [Suspect]
     Dates: start: 20110218, end: 20110304
  4. TERGURIDE [Concomitant]
     Indication: PITUITARY TUMOUR BENIGN
     Route: 048
  5. INDAPAMIDE [Concomitant]
     Indication: RENAL FAILURE
     Route: 048
     Dates: end: 20110317
  6. RABEPRAZOLE SODIUM [Concomitant]
     Indication: PROPHYLAXIS AGAINST GASTROINTESTINAL ULCER
     Route: 048
  7. PREDNISOLONE [Concomitant]
     Indication: RHEUMATOID ARTHRITIS
     Route: 048
     Dates: start: 20101217
  8. PREDNISOLONE [Concomitant]
     Dosage: DAILY DOSE: 1MG
     Dates: start: 201005
  9. PREDNISOLONE [Concomitant]
     Dosage: DAILY DOSE: 10MG
     Dates: start: 20101203
  10. CARVEDILOL [Concomitant]
     Indication: HYPERTENSION
     Route: 048
     Dates: end: 20110314
  11. CANDESARTAN CILEXETIL [Concomitant]
     Indication: HYPERTENSION
     Route: 048
     Dates: end: 20110314

REACTIONS (15)
  - Microscopic polyangiitis [Recovered/Resolved with Sequelae]
  - Anti-glomerular basement membrane antibody positive [Recovered/Resolved with Sequelae]
  - Blood creatinine increased [Unknown]
  - Renal failure chronic [Unknown]
  - Haematuria [Unknown]
  - Rales [Unknown]
  - Cardiac murmur [Unknown]
  - Petechiae [Unknown]
  - Oedema [Unknown]
  - Arthralgia [Unknown]
  - Oedema peripheral [Unknown]
  - Purpura [Unknown]
  - Platelet count decreased [Unknown]
  - Pleural effusion [Unknown]
  - Vasculitis [Unknown]
